FAERS Safety Report 13015850 (Version 1)
Quarter: 2016Q4

REPORT INFORMATION
  Report Type: Spontaneous
  Country: DE (occurrence: DE)
  Receive Date: 20161212
  Receipt Date: 20161212
  Transmission Date: 20170207
  Serious: Yes (Other)
  Sender: FDA-Public Use
  Company Number: DE-LUPIN PHARMACEUTICALS INC.-2016-05439

PATIENT
  Sex: Male

DRUGS (1)
  1. LEVETIRACETAM-HORMOSAN 1000 MG FILMTABLETTEN [Suspect]
     Active Substance: LEVETIRACETAM
     Indication: PRODUCT USED FOR UNKNOWN INDICATION
     Route: 048

REACTIONS (2)
  - General physical health deterioration [Unknown]
  - Dysphagia [Unknown]
